FAERS Safety Report 13999153 (Version 2)
Quarter: 2020Q1

REPORT INFORMATION
  Report Type: Spontaneous
  Country: US (occurrence: US)
  Receive Date: 20170922
  Receipt Date: 20200225
  Transmission Date: 20200409
  Serious: Yes (Death, Hospitalization, Other)
  Sender: FDA-Public Use
  Company Number: US-009507513-1709USA010662

PATIENT
  Sex: Female

DRUGS (4)
  1. JANUMET [Suspect]
     Active Substance: METFORMIN HYDROCHLORIDE\SITAGLIPTIN PHOSPHATE
     Indication: PRODUCT USED FOR UNKNOWN INDICATION
     Dosage: 50/1000 MG, QD
     Route: 065
     Dates: start: 20090429, end: 201003
  2. VICTOZA [Suspect]
     Active Substance: LIRAGLUTIDE
     Indication: PRODUCT USED FOR UNKNOWN INDICATION
     Dosage: 1.8 MILLIGRAM, QD
     Route: 065
     Dates: start: 20130831, end: 201512
  3. BYETTA [Suspect]
     Active Substance: EXENATIDE
     Indication: PRODUCT USED FOR UNKNOWN INDICATION
     Dosage: UNK UNK, QD
     Route: 065
     Dates: start: 20060728, end: 200704
  4. METFORMIN [Concomitant]
     Active Substance: METFORMIN HYDROCHLORIDE
     Dosage: UNK
     Dates: end: 201512

REACTIONS (11)
  - Pancreatic carcinoma [Fatal]
  - Colitis microscopic [Unknown]
  - Anaemia of chronic disease [Unknown]
  - Hepatic cirrhosis [Unknown]
  - Vitamin B12 deficiency [Unknown]
  - Hypothyroidism [Unknown]
  - Hyponatraemia [Unknown]
  - Hypokalaemia [Unknown]
  - Malnutrition [Unknown]
  - Hypomagnesaemia [Unknown]
  - Ascites [Unknown]

NARRATIVE: CASE EVENT DATE: 20151207
